FAERS Safety Report 4430662-4 (Version None)
Quarter: 2004Q3

REPORT INFORMATION
  Report Type: 
  Country: None (occurrence: None)
  Receive Date: 20040721
  Receipt Date: 20040415
  Transmission Date: 20050211
  Serious: Yes (Life-Threatening, Hospitalization)
  Sender: FDA-Public Use
  Company Number: WAES 0404USA01550

PATIENT
  Sex: Female

DRUGS (2)
  1. VIOXX [Suspect]
     Indication: MIGRAINE
     Dosage: 100 MG/DAILY/PO
     Route: 048
     Dates: end: 20040412
  2. MAXALT [Concomitant]

REACTIONS (2)
  - PRESCRIBED OVERDOSE [None]
  - RENAL FAILURE ACUTE [None]
